FAERS Safety Report 10825649 (Version 1)
Quarter: 2015Q1

REPORT INFORMATION
  Report Type: Spontaneous
  Country: DE (occurrence: None)
  Receive Date: 20150213
  Receipt Date: 20150213
  Transmission Date: 20150721
  Serious: Yes (Hospitalization)
  Sender: FDA-Public Use
  Company Number: 2014BI111320

PATIENT
  Age: 46 Year
  Sex: Female

DRUGS (1)
  1. TECFIDERA [Suspect]
     Active Substance: DIMETHYL FUMARATE
     Indication: MULTIPLE SCLEROSIS
     Route: 048
     Dates: start: 20140929, end: 20141005

REACTIONS (9)
  - Abdominal pain upper [None]
  - Hyperhidrosis [None]
  - Decreased appetite [None]
  - Pyrexia [None]
  - Chills [None]
  - Intentional underdose [None]
  - Circulatory collapse [None]
  - Dizziness [None]
  - Nasopharyngitis [None]

NARRATIVE: CASE EVENT DATE: 20141012
